FAERS Safety Report 7235423-9 (Version None)
Quarter: 2011Q1

REPORT INFORMATION
  Report Type: 
  Country: None (occurrence: None)
  Receive Date: 20110120
  Receipt Date: 20110111
  Transmission Date: 20110831
  Serious: Yes (Other)
  Sender: FDA-Public Use
  Company Number: AU-ASTRAZENECA-2010SE59328

PATIENT
  Age: 74 Year
  Sex: Female
  Weight: 65 kg

DRUGS (1)
  1. ATACAND [Suspect]
     Indication: HYPERTENSION
     Route: 048

REACTIONS (6)
  - NIGHTMARE [None]
  - DRUG DOSE OMISSION [None]
  - ABNORMAL DREAMS [None]
  - FALL [None]
  - SOMNAMBULISM [None]
  - BACK INJURY [None]
